FAERS Safety Report 5286797-X (Version None)
Quarter: 2007Q2

REPORT INFORMATION
  Report Type: 
  Country: None (occurrence: None)
  Receive Date: 20070404
  Receipt Date: 20070330
  Transmission Date: 20071010
  Serious: Yes (Death)
  Sender: FDA-Public Use
  Company Number: 2006UW11899

PATIENT
  Sex: Male
  Weight: 88.6 kg

DRUGS (4)
  1. SEROQUEL [Suspect]
     Indication: SCHIZOPHRENIA
     Route: 048
  2. SEROQUEL [Suspect]
     Indication: ANXIETY
     Route: 048
  3. ZYPREXA [Suspect]
  4. ABILIFY [Concomitant]

REACTIONS (2)
  - DEATH [None]
  - DIABETES MELLITUS [None]
